APPROVED DRUG PRODUCT: IMIPENEM AND CILASTATIN
Active Ingredient: CILASTATIN SODIUM; IMIPENEM
Strength: EQ 500MG BASE/VIAL;500MG/VIAL
Dosage Form/Route: POWDER;INTRAVENOUS
Application: A207594 | Product #001 | TE Code: AP
Applicant: HQ SPECIALTY PHARMA CORP
Approved: Dec 12, 2019 | RLD: No | RS: No | Type: RX